FAERS Safety Report 9102007 (Version 2)
Quarter: 2013Q4

REPORT INFORMATION
  Report Type: Spontaneous
  Country: US (occurrence: US)
  Receive Date: 20130218
  Receipt Date: 20131023
  Transmission Date: 20140711
  Serious: Yes (Hospitalization, Other)
  Sender: FDA-Public Use
  Company Number: US-BAYER-2013-017732

PATIENT
  Age: 20 Year
  Sex: Female
  Weight: 62.13 kg

DRUGS (7)
  1. MIRENA [Suspect]
     Indication: CONTRACEPTION
     Dosage: 20 MCG/24HR, CONT
     Route: 015
     Dates: start: 20110614, end: 20110808
  2. MIRENA [Suspect]
     Indication: CONTRACEPTION
     Dosage: 20 MCG/24HR, CONT
     Route: 015
     Dates: start: 2010, end: 2010
  3. MIRENA [Suspect]
     Indication: CONTRACEPTION
  4. NASONEX [Concomitant]
  5. PRENATAL VITAMINS [Concomitant]
  6. HYDROCODONE W/APAP [Concomitant]
  7. NAPROXEN [Concomitant]

REACTIONS (6)
  - Medical device complication [None]
  - Uterine perforation [None]
  - Pain [None]
  - Injury [None]
  - Device dislocation [None]
  - Device deployment issue [None]
